FAERS Safety Report 16189421 (Version 1)
Quarter: 2019Q2

REPORT INFORMATION
  Report Type: Spontaneous
  Country: CA (occurrence: CA)
  Receive Date: 20190412
  Receipt Date: 20190412
  Transmission Date: 20190711
  Serious: Yes (Death)
  Sender: FDA-Public Use
  Company Number: CA-BAUSCH-BL-2018-031736

PATIENT
  Age: 78 Year
  Sex: Male

DRUGS (1)
  1. ZAXINE (RIFAXIMIN) [Suspect]
     Active Substance: RIFAXIMIN
     Indication: PRODUCT USED FOR UNKNOWN INDICATION
     Route: 048

REACTIONS (3)
  - Disease complication [Fatal]
  - Product use complaint [Unknown]
  - Product size issue [Unknown]

NARRATIVE: CASE EVENT DATE: 20181107
